FAERS Safety Report 8142937-6 (Version None)
Quarter: 2012Q1

REPORT INFORMATION
  Report Type: 
  Country: None (occurrence: None)
  Receive Date: 20120217
  Receipt Date: 20120209
  Transmission Date: 20120608
  Serious: No
  Sender: FDA-Public Use
  Company Number: US-BIOGENIDEC-2011BI047531

PATIENT
  Age: 41 Year
  Sex: Female

DRUGS (2)
  1. TYSABRI [Suspect]
     Indication: MULTIPLE SCLEROSIS
     Route: 042
     Dates: start: 20111011
  2. AVONEX [Concomitant]
     Indication: MULTIPLE SCLEROSIS
     Route: 030

REACTIONS (8)
  - OEDEMA PERIPHERAL [None]
  - PRURITUS [None]
  - WEIGHT DECREASED [None]
  - HYPERSENSITIVITY [None]
  - BODY TEMPERATURE DECREASED [None]
  - POOR VENOUS ACCESS [None]
  - DYSMENORRHOEA [None]
  - MEMORY IMPAIRMENT [None]
